FAERS Safety Report 8204785-8 (Version None)
Quarter: 2012Q1

REPORT INFORMATION
  Report Type: 
  Country: None (occurrence: None)
  Receive Date: 20120313
  Receipt Date: 20120302
  Transmission Date: 20120608
  Serious: Yes (Hospitalization)
  Sender: FDA-Public Use
  Company Number: US-JNJFOC-20120302468

PATIENT
  Age: 64 Year
  Sex: Male

DRUGS (3)
  1. REMICADE [Suspect]
     Route: 042
     Dates: start: 20091201
  2. ALL OTHER THERAPEUTIC PRODUCTS [Suspect]
     Indication: PRODUCT USED FOR UNKNOWN INDICATION
     Route: 065
     Dates: start: 20120101
  3. REMICADE [Suspect]
     Indication: COLITIS ULCERATIVE
     Dosage: STOP DATE CONFLICTINGLY REPORTED AS 2012
     Route: 042
     Dates: start: 20111206, end: 20111206

REACTIONS (5)
  - HISTOPLASMOSIS [None]
  - RENAL FAILURE [None]
  - HEPATIC ENZYME INCREASED [None]
  - DISTURBANCE IN ATTENTION [None]
  - SPLENIC LESION [None]
